FAERS Safety Report 9276561 (Version 1)
Quarter: 2013Q2

REPORT INFORMATION
  Report Type: Spontaneous
  Country: US (occurrence: US)
  Receive Date: 20130507
  Receipt Date: 20130507
  Transmission Date: 20140414
  Serious: Yes (Other)
  Sender: FDA-Public Use
  Company Number: US-FRI-1000044063

PATIENT
  Age: 84 Year
  Sex: Male

DRUGS (4)
  1. NAMENDA [Suspect]
     Indication: DEMENTIA ALZHEIMER^S TYPE
     Dates: start: 201210, end: 201303
  2. NAMENDA [Suspect]
     Indication: DEMENTIA ALZHEIMER^S TYPE
     Dates: start: 20130423
  3. DONEPEZIL [Concomitant]
     Indication: DEMENTIA ALZHEIMER^S TYPE
  4. ZYRTEC [Concomitant]

REACTIONS (4)
  - Delirium [Not Recovered/Not Resolved]
  - Kidney infection [Not Recovered/Not Resolved]
  - Hallucination [Not Recovered/Not Resolved]
  - Confusional state [Not Recovered/Not Resolved]
